FAERS Safety Report 17888664 (Version 1)
Quarter: 2020Q2

REPORT INFORMATION
  Report Type: Spontaneous
  Country: DE (occurrence: DE)
  Receive Date: 20200612
  Receipt Date: 20200612
  Transmission Date: 20200714
  Serious: Yes (Other)
  Sender: FDA-Public Use
  Company Number: DE-SGP-000005

PATIENT
  Age: 67 Year

DRUGS (2)
  1. METHYLPREDNISOLONE. [Suspect]
     Active Substance: METHYLPREDNISOLONE
     Indication: SECONDARY CEREBELLAR DEGENERATION
     Route: 042
  2. IMMUNOGLOBULINS NOS [Suspect]
     Active Substance: IMMUNE GLOBULIN NOS
     Indication: SECONDARY CEREBELLAR DEGENERATION
     Route: 042

REACTIONS (5)
  - Drug ineffective [Unknown]
  - Respiratory distress [Unknown]
  - Product use in unapproved indication [Unknown]
  - Disease progression [Unknown]
  - Secondary cerebellar degeneration [Unknown]
